FAERS Safety Report 8068775-0 (Version None)
Quarter: 2012Q1

REPORT INFORMATION
  Report Type: 
  Country: None (occurrence: None)
  Receive Date: 20120124
  Receipt Date: 20111221
  Transmission Date: 20120608
  Serious: No
  Sender: FDA-Public Use
  Company Number: US-AMGEN-USASP2011050444

PATIENT
  Age: 80 Year
  Sex: Female
  Weight: 47.166 kg

DRUGS (8)
  1. HYDROCHLOROTHIAZIDE [Concomitant]
     Indication: HYPERTENSION
     Dosage: UNK
     Dates: start: 20090305
  2. PROLIA [Suspect]
     Indication: OSTEOPOROSIS POSTMENOPAUSAL
     Dosage: 60 MG, Q6MO
     Route: 058
     Dates: start: 20101011
  3. LEVOTHYROXINE SODIUM [Concomitant]
     Indication: HYPOTHYROIDISM
     Dosage: UNK
     Dates: start: 20090508
  4. PREMARIN [Concomitant]
     Dosage: UNK
  5. SIMVASTATIN [Concomitant]
     Dosage: UNK
     Dates: start: 20090316
  6. PROLIA [Suspect]
     Indication: SENILE OSTEOPOROSIS
  7. MULTI-VITAMIN [Concomitant]
  8. AMLODIPINE [Concomitant]
     Indication: HYPERTENSION
     Dosage: UNK
     Dates: start: 20090611

REACTIONS (6)
  - NERVOUSNESS [None]
  - ASTHENIA [None]
  - DYSSTASIA [None]
  - FEELING COLD [None]
  - TREMOR [None]
  - FATIGUE [None]
